FAERS Safety Report 10597902 (Version 1)
Quarter: 2014Q4

REPORT INFORMATION
  Report Type: Spontaneous
  Country: None (occurrence: None)
  Receive Date: 20141120
  Receipt Date: 20141120
  Transmission Date: 20150529
  Serious: Yes (Disabling)
  Sender: FDA-Public Use
  Company Number: None

PATIENT

DRUGS (1)
  1. LEVOTHYROXINE 25 MCG MYLAN [Suspect]
     Active Substance: LEVOTHYROXINE
     Dosage: 1 PILL  ONCE DAILY TAKEN BY MOUTH
     Route: 048
     Dates: start: 20140828, end: 20141118

REACTIONS (3)
  - Product substitution issue [None]
  - Blood thyroid stimulating hormone decreased [None]
  - Product quality issue [None]

NARRATIVE: CASE EVENT DATE: 20141002
